FAERS Safety Report 19301990 (Version 2)
Quarter: 2021Q4

REPORT INFORMATION
  Report Type: Spontaneous
  Country: US (occurrence: US)
  Receive Date: 20210524
  Receipt Date: 20211227
  Transmission Date: 20220303
  Serious: Yes (Other)
  Sender: FDA-Public Use
  Company Number: US-PURDUE-USA-2020-0180721

PATIENT
  Sex: Female

DRUGS (3)
  1. OXYCONTIN [Suspect]
     Active Substance: OXYCODONE HYDROCHLORIDE
     Indication: Back pain
     Dosage: UNK UNK, QID
     Route: 048
  2. MS CONTIN [Suspect]
     Active Substance: MORPHINE SULFATE
     Indication: Back pain
     Dosage: 30 MG, QID
     Route: 048
     Dates: start: 2016
  3. MORPHINE SULFATE [Suspect]
     Active Substance: MORPHINE SULFATE
     Indication: Back pain
     Dosage: UNK UNK, QID
     Route: 048

REACTIONS (9)
  - Overdose [Unknown]
  - Drug dependence [Unknown]
  - Mental disorder [Unknown]
  - Sleep disorder [Unknown]
  - Pain [Unknown]
  - Emotional distress [Unknown]
  - Headache [Unknown]
  - Constipation [Unknown]
  - Depression [Unknown]
